FAERS Safety Report 5280803-4 (Version None)
Quarter: 2007Q1

REPORT INFORMATION
  Report Type: 
  Country: None (occurrence: None)
  Receive Date: 20070329
  Receipt Date: 20070316
  Transmission Date: 20070707
  Serious: Yes (Other)
  Sender: FDA-Public Use
  Company Number: US-ELI_LILLY_AND_COMPANY-US200702001513

PATIENT
  Age: 14 Year
  Sex: Male
  Weight: 54.195 kg

DRUGS (3)
  1. STRATTERA [Suspect]
     Indication: ATTENTION DEFICIT/HYPERACTIVITY DISORDER
     Dosage: 60 MG, UNK
     Dates: start: 20041123, end: 20061215
  2. STRATTERA [Suspect]
     Dosage: 40 MG, EACH EVENING
     Dates: start: 20070124
  3. WELLBUTRIN [Concomitant]
     Dosage: 100 MG, 2/D
     Dates: start: 20060617

REACTIONS (12)
  - CHEST PAIN [None]
  - DIZZINESS [None]
  - DYSPNOEA [None]
  - ELECTROCARDIOGRAM ABNORMAL [None]
  - EPISTAXIS [None]
  - LOSS OF CONSCIOUSNESS [None]
  - PANIC ATTACK [None]
  - RHINITIS ALLERGIC [None]
  - SCLERITIS [None]
  - SINUS TACHYCARDIA [None]
  - STRESS [None]
  - TACHYCARDIA [None]
